FAERS Safety Report 23912230 (Version 1)
Quarter: 2024Q2

REPORT INFORMATION
  Report Type: Spontaneous
  Country: AU (occurrence: AU)
  Receive Date: 20240528
  Receipt Date: 20240528
  Transmission Date: 20240715
  Serious: Yes (Hospitalization, Other)
  Sender: FDA-Public Use
  Company Number: AU-CURIUM-2024000295

PATIENT
  Age: 70 Year
  Sex: Female
  Weight: 87 kg

DRUGS (2)
  1. TECHNETIUM TC-99M OXIDRONATE [Suspect]
     Active Substance: TECHNETIUM TC-99M OXIDRONATE
     Indication: Bone scan
     Route: 042
     Dates: start: 20240509, end: 20240509
  2. TECHNELITE [Concomitant]
     Active Substance: TECHNETIUM TC-99M SODIUM PERTECHNETATE
     Indication: Bone scan
     Route: 042
     Dates: start: 20240509, end: 20240509

REACTIONS (4)
  - Dyspnoea [Recovered/Resolved]
  - Pharyngeal swelling [Recovered/Resolved]
  - Pruritus [Recovered/Resolved]
  - Hot flush [Recovered/Resolved]

NARRATIVE: CASE EVENT DATE: 20240509
